FAERS Safety Report 9731560 (Version 1)
Quarter: 2013Q4

REPORT INFORMATION
  Report Type: Spontaneous
  Country: US (occurrence: None)
  Receive Date: 20131204
  Receipt Date: 20131204
  Transmission Date: 20140711
  Serious: Yes (Life-Threatening, Hospitalization, Disabling)
  Sender: FDA-Public Use
  Company Number: None

PATIENT
  Age: 40 Year
  Sex: Male
  Weight: 131.54 kg

DRUGS (1)
  1. TESTOSTERONE CIPRINATE [Suspect]
     Indication: BLOOD TESTOSTERONE DECREASED
     Route: 030

REACTIONS (3)
  - Thrombosis [None]
  - Pulmonary embolism [None]
  - Apparent death [None]
